FAERS Safety Report 5166794-5 (Version None)
Quarter: 2006Q4

REPORT INFORMATION
  Report Type: 
  Country: None (occurrence: None)
  Receive Date: 20061129
  Receipt Date: 20061116
  Transmission Date: 20070319
  Serious: Yes (Hospitalization)
  Sender: FDA-Public Use
  Company Number: 2006BI012664

PATIENT
  Sex: Female

DRUGS (2)
  1. AVONEX [Suspect]
     Indication: MULTIPLE SCLEROSIS
     Dosage: 30 UG; QW; IM
     Route: 030
     Dates: start: 20041213, end: 20060422
  2. COVERSUM COMBI [Concomitant]

REACTIONS (3)
  - CHOLANGITIS [None]
  - PANCREATITIS [None]
  - POST PROCEDURAL COMPLICATION [None]
